FAERS Safety Report 14139638 (Version 2)
Quarter: 2017Q4

REPORT INFORMATION
  Report Type: Spontaneous
  Country: US (occurrence: US)
  Receive Date: 20171029
  Receipt Date: 20171030
  Transmission Date: 20180321
  Serious: Yes (Other)
  Sender: FDA-Public Use
  Company Number: US-CELGENEUS-USA-20171006652

PATIENT
  Age: 59 Year
  Sex: Female

DRUGS (1)
  1. OTEZLA [Suspect]
     Active Substance: APREMILAST
     Indication: PSORIASIS
     Dosage: 60 MILLIGRAM
     Route: 048
     Dates: start: 20171006

REACTIONS (10)
  - Gastroenteritis viral [Unknown]
  - Feeling cold [Unknown]
  - Malaise [Unknown]
  - Parosmia [Unknown]
  - Upper respiratory tract infection [Unknown]
  - Nausea [Unknown]
  - Insomnia [Unknown]
  - Decreased appetite [Unknown]
  - Chest discomfort [Unknown]
  - Dysgeusia [Unknown]

NARRATIVE: CASE EVENT DATE: 20171006
